FAERS Safety Report 6376088-8 (Version None)
Quarter: 2009Q3

REPORT INFORMATION
  Report Type: 
  Country: None (occurrence: None)
  Receive Date: 20090918
  Receipt Date: 20090904
  Transmission Date: 20100115
  Serious: Yes (Hospitalization)
  Sender: FDA-Public Use
  Company Number: DAB-2009-00014

PATIENT
  Sex: Female

DRUGS (4)
  1. EPIRUBICIN [Suspect]
     Indication: ADENOCARCINOMA
     Dosage: INTRAVENOUS
     Route: 042
     Dates: start: 20090702
  2. ELOXATIN [Concomitant]
     Dates: start: 20090702, end: 20090702
  3. DEXTROSE 5% [Suspect]
     Indication: DRUG USE FOR UNKNOWN INDICATION
     Dosage: (500 ML)
     Dates: start: 20090702
  4. CAPECITABINE [Concomitant]

REACTIONS (8)
  - BLOOD PRESSURE INADEQUATELY CONTROLLED [None]
  - CATHETER RELATED INFECTION [None]
  - FATIGUE [None]
  - OLIGURIA [None]
  - PYREXIA [None]
  - SEPSIS [None]
  - SHOCK [None]
  - VOMITING [None]
